FAERS Safety Report 17651810 (Version 1)
Quarter: 2020Q2

REPORT INFORMATION
  Report Type: Spontaneous
  Country: US (occurrence: US)
  Receive Date: 20200409
  Receipt Date: 20200409
  Transmission Date: 20200713
  Serious: Yes (Hospitalization)
  Sender: FDA-Public Use
  Company Number: US-AMNEAL PHARMACEUTICALS-2020-AMRX-01011

PATIENT
  Sex: Male

DRUGS (6)
  1. RYTARY [Suspect]
     Active Substance: CARBIDOPA\LEVODOPA
     Indication: PRODUCT USED FOR UNKNOWN INDICATION
     Dosage: UNK
     Route: 065
  2. NUPLAZID [Suspect]
     Active Substance: PIMAVANSERIN TARTRATE
     Indication: DELUSION
     Dosage: CAPSULE, 34 MILLIGRAM, QD
     Route: 048
  3. NUPLAZID [Suspect]
     Active Substance: PIMAVANSERIN TARTRATE
     Indication: HALLUCINATION
     Dosage: (17 MG TABLET) 34 MILLIGRAM, QD
     Route: 048
     Dates: start: 20180309
  4. NYSTOP [Concomitant]
     Active Substance: NYSTATIN
     Indication: PRODUCT USED FOR UNKNOWN INDICATION
     Dosage: UNK
     Route: 065
  5. NUPLAZID [Suspect]
     Active Substance: PIMAVANSERIN TARTRATE
     Indication: PARKINSON^S DISEASE
  6. NUPLAZID [Suspect]
     Active Substance: PIMAVANSERIN TARTRATE
     Indication: PARKINSON^S DISEASE PSYCHOSIS
     Dosage: (17 MG TABLET) 34 MILLIGRAM, QD
     Route: 048
     Dates: start: 20180209

REACTIONS (9)
  - Respiratory muscle weakness [Unknown]
  - Adverse drug reaction [Not Recovered/Not Resolved]
  - Pulmonary embolism [Unknown]
  - Confusional state [Unknown]
  - Hypokinesia [Unknown]
  - Thrombosis [Unknown]
  - Syncope [Unknown]
  - Urinary retention [Unknown]
  - Dyspnoea [Unknown]
